FAERS Safety Report 7517968-7 (Version None)
Quarter: 2011Q2

REPORT INFORMATION
  Report Type: 
  Country: None (occurrence: None)
  Receive Date: 20110527
  Receipt Date: 20110527
  Transmission Date: 20111010
  Serious: Yes (Hospitalization)
  Sender: FDA-Public Use
  Company Number: None

PATIENT
  Sex: Female
  Weight: 107.3 kg

DRUGS (2)
  1. TAXOL [Suspect]
     Dosage: 173 MG
     Dates: end: 20110512
  2. HERCEPTIN [Suspect]
     Dosage: 213 MG
     Dates: end: 20110512

REACTIONS (3)
  - ASTHENIA [None]
  - EXTRADURAL ABSCESS [None]
  - CATHETER REMOVAL [None]
